FAERS Safety Report 7381695-X (Version None)
Quarter: 2011Q1

REPORT INFORMATION
  Report Type: 
  Country: None (occurrence: None)
  Receive Date: 20110329
  Receipt Date: 20110316
  Transmission Date: 20110831
  Serious: Yes (Hospitalization)
  Sender: FDA-Public Use
  Company Number: JP-SANOFI-AVENTIS-2011SA016927

PATIENT
  Age: 47 Year
  Sex: Male
  Weight: 77 kg

DRUGS (13)
  1. CARVEDILOL [Suspect]
     Route: 065
  2. ENALAPRIL MALEATE [Suspect]
     Route: 065
  3. CARPERITIDE [Concomitant]
     Route: 065
  4. CARVEDILOL [Suspect]
     Route: 065
  5. SPIRONOLACTONE [Suspect]
     Indication: DIURETIC THERAPY
     Route: 065
  6. ENALAPRIL MALEATE [Suspect]
     Route: 065
  7. CARVEDILOL [Suspect]
     Route: 065
  8. CARVEDILOL [Suspect]
     Route: 065
  9. CARVEDILOL [Suspect]
     Route: 065
  10. CARVEDILOL [Suspect]
     Route: 065
  11. FUROSEMIDE [Suspect]
     Indication: DIURETIC THERAPY
     Dosage: DOSE: 10-20 MG DAILY
     Route: 065
  12. CARVEDILOL [Suspect]
     Route: 065
  13. CARVEDILOL [Suspect]
     Route: 065

REACTIONS (6)
  - RALES [None]
  - HYPOTENSION [None]
  - HEART RATE INCREASED [None]
  - PERIPHERAL COLDNESS [None]
  - SHOCK [None]
  - DYSPNOEA [None]
